FAERS Safety Report 16943334 (Version 2)
Quarter: 2019Q4

REPORT INFORMATION
  Report Type: Spontaneous
  Country: JP (occurrence: JP)
  Receive Date: 20191022
  Receipt Date: 20191029
  Transmission Date: 20200122
  Serious: Yes (Other)
  Sender: FDA-Public Use
  Company Number: JP-SA-2018SA326225

PATIENT
  Age: 84 Year
  Sex: Male

DRUGS (1)
  1. PLAVIX [Suspect]
     Active Substance: CLOPIDOGREL BISULFATE
     Indication: PRODUCT USED FOR UNKNOWN INDICATION
     Route: 048

REACTIONS (6)
  - Paralysis [Recovering/Resolving]
  - Muscular weakness [Unknown]
  - Spinal epidural haematoma [Unknown]
  - Gait inability [Unknown]
  - Hypoaesthesia [Unknown]
  - Neck pain [Unknown]
